FAERS Safety Report 9267066 (Version 1)
Quarter: 2013Q2

REPORT INFORMATION
  Report Type: Spontaneous
  Country: US (occurrence: US)
  Receive Date: 20130502
  Receipt Date: 20130502
  Transmission Date: 20140414
  Serious: No
  Sender: FDA-Public Use
  Company Number: US-PFIZER INC-2013134458

PATIENT
  Age: 52 Year
  Sex: Female
  Weight: 52.15 kg

DRUGS (8)
  1. XELJANZ [Suspect]
     Indication: RHEUMATOID ARTHRITIS
     Dosage: 5 MG, 2X/DAY
     Route: 048
  2. CELEBREX [Concomitant]
     Dosage: 100 MG, UNK
  3. GABAPENTIN [Concomitant]
     Dosage: 100 MG, UNK
  4. VITAMIN D [Concomitant]
     Dosage: 400 IU, UNK
  5. PROBIOTICS [Concomitant]
     Dosage: UNK
  6. DHEA [Concomitant]
     Dosage: 25 MG, UNK
  7. SYNTHROID [Concomitant]
     Dosage: 112 UG, UNK
  8. PROGESTERONE [Concomitant]
     Dosage: 100 MG, UNK

REACTIONS (1)
  - Sensitivity of teeth [Unknown]
